FAERS Safety Report 7671237-3 (Version None)
Quarter: 2011Q3

REPORT INFORMATION
  Report Type: 
  Country: None (occurrence: None)
  Receive Date: 20110809
  Receipt Date: 20110726
  Transmission Date: 20111222
  Serious: Yes (Death, Hospitalization, Other)
  Sender: FDA-Public Use
  Company Number: US-ELI_LILLY_AND_COMPANY-US201108000594

PATIENT
  Sex: Female

DRUGS (12)
  1. DETROL [Concomitant]
     Indication: BLADDER DISORDER
  2. FORTEO [Suspect]
     Indication: OSTEOPOROSIS
     Dosage: 20 UG, QD
     Dates: start: 20090101, end: 20110601
  3. FUROSEMIDE [Concomitant]
     Indication: FLUID RETENTION
  4. TRAMADOL HCL [Concomitant]
     Indication: PAIN
  5. TYLENOL                                 /SCH/ [Concomitant]
     Indication: PAIN
  6. MULTI-VITAMIN [Concomitant]
  7. POTASSIUM CHLORIDE [Concomitant]
     Indication: BLOOD POTASSIUM ABNORMAL
  8. PROXETINE [Concomitant]
     Indication: DEPRESSION
  9. LEVOTHYROXINE SODIUM [Concomitant]
     Indication: THYROID DISORDER
  10. SIMVASTATIN [Concomitant]
     Indication: BLOOD CHOLESTEROL ABNORMAL
  11. ASPIRIN [Concomitant]
     Dosage: 81 MG, UNK
  12. VITAMIN D [Concomitant]

REACTIONS (6)
  - PARALYSIS [None]
  - ENDOTRACHEAL INTUBATION [None]
  - DYSPNOEA [None]
  - BACK PAIN [None]
  - CEREBROVASCULAR ACCIDENT [None]
  - FALL [None]
